FAERS Safety Report 10609966 (Version 5)
Quarter: 2015Q1

REPORT INFORMATION
  Report Type: Spontaneous
  Country: US (occurrence: US)
  Receive Date: 20141126
  Receipt Date: 20150128
  Transmission Date: 20150720
  Serious: No
  Sender: FDA-Public Use
  Company Number: US-PFIZER INC-2014321497

PATIENT
  Age: 70 Year
  Sex: Male
  Weight: 91 kg

DRUGS (2)
  1. LATANOPROST. [Suspect]
     Active Substance: LATANOPROST
     Indication: ANGLE CLOSURE GLAUCOMA
     Dosage: ONE DROP IN EACH EYE, 1XDAY
     Route: 047
     Dates: start: 20050420
  2. REFRESH [Concomitant]
     Active Substance: UNSPECIFIED INGREDIENT
     Dosage: AS NEEDED 1-2 TIMES PER DAY

REACTIONS (3)
  - Eye irritation [Recovered/Resolved]
  - Incorrect dose administered [Recovered/Resolved]
  - Product dropper issue [Recovered/Resolved]

NARRATIVE: CASE EVENT DATE: 20141124
